FAERS Safety Report 9780333 (Version 2)
Quarter: 2013Q4

REPORT INFORMATION
  Report Type: Spontaneous
  Country: CH (occurrence: CH)
  Receive Date: 20131224
  Receipt Date: 20131230
  Transmission Date: 20140711
  Serious: Yes (Hospitalization)
  Sender: FDA-Public Use
  Company Number: CH-009507513-1312CHE009327

PATIENT
  Age: 54 Year
  Sex: Male

DRUGS (27)
  1. EMEND [Suspect]
     Indication: PROPHYLAXIS OF NAUSEA AND VOMITING
     Dosage: 125MG ON 26NOV2013 AND 80MG PER DAY THE FOLLOWING DAYS)
     Route: 041
     Dates: start: 20131126, end: 20131126
  2. EMEND [Suspect]
     Dosage: 80 MG, QD(125MG ON 26NOV2013 AND 80MG PER DAY THE FOLLOWING DAYS)
     Route: 041
     Dates: start: 20131127, end: 20131203
  3. BUSILVEX [Suspect]
     Indication: PROPHYLAXIS
     Dosage: 64 MG, QID
     Route: 041
     Dates: start: 20131128, end: 20131201
  4. ATG FRESENIUS [Suspect]
     Indication: PROPHYLAXIS
     Dosage: 400 MG, QD
     Route: 041
     Dates: start: 20131129, end: 20131129
  5. ATG FRESENIUS [Suspect]
     Dosage: 800 MG, QD
     Route: 041
     Dates: start: 20131130, end: 20131130
  6. ATG FRESENIUS [Suspect]
     Dosage: 1600MG, QD
     Route: 041
     Dates: start: 20131201, end: 20131201
  7. ENDOXAN [Suspect]
     Indication: PROPHYLAXIS
     Dosage: 4800MG, QD
     Route: 041
     Dates: start: 20131126, end: 20131127
  8. SOLU-MEDROL [Suspect]
     Indication: PROPHYLAXIS
     Dosage: 80 MG, QD
     Route: 041
     Dates: start: 20131129, end: 20131201
  9. AMIKIN [Suspect]
     Indication: INFECTION
     Dosage: 1 G, QD
     Route: 041
     Dates: start: 20131128, end: 20131130
  10. NOPIL [Suspect]
     Indication: PROPHYLAXIS
     Dosage: 1 DF, TIW
     Route: 048
     Dates: start: 20131122
  11. CEFEPIME [Suspect]
     Indication: BACTERIAL INFECTION
     Dosage: 2 G, TID
     Route: 041
     Dates: start: 20131128, end: 20131205
  12. DIFLUCAN [Suspect]
     Indication: PROPHYLAXIS
     Dosage: 400 MG, QW
     Route: 048
     Dates: start: 20131121
  13. VALTREX [Suspect]
     Indication: PROPHYLAXIS
     Dosage: 500 MG, BID
     Route: 048
     Dates: start: 20131121
  14. LASIX (FUROSEMIDE) [Suspect]
     Indication: POLYURIA
     Dosage: 1DF, PRN(INTERRUPTED FROM 02DEC2013 TO 03DEC2013; ON THE OTHER DAYS DIFFERENT DOSAGES SEE NARRATIVE)
     Route: 041
     Dates: start: 20131126
  15. PANTOZOL [Suspect]
     Indication: PROPHYLAXIS
     Dosage: 40 MG, QD
     Route: 048
     Dates: start: 20131122
  16. ZYLORIC [Suspect]
     Indication: GOUT
     Dosage: 300 MG, QD
     Route: 048
     Dates: start: 20131121, end: 20131203
  17. ALOXI [Suspect]
     Indication: PROPHYLAXIS OF NAUSEA AND VOMITING
     Dosage: 0.25 MG, QD
     Route: 041
     Dates: start: 20131126, end: 20131126
  18. UROMITEXAN [Suspect]
     Indication: PROPHYLAXIS
     Dosage: 1 DF, PRN(12 VIALS ON 26NOV2013 AND 27NOV2013; 5 VIALS ON 28NOV2013)
     Route: 041
     Dates: start: 20131126, end: 20131128
  19. SANDIMMUN [Concomitant]
     Indication: PROPHYLAXIS
     Dosage: 225 MG, QD
     Route: 041
     Dates: start: 20131201, end: 20131203
  20. SANDIMMUN [Concomitant]
     Dosage: 300 MG, QD
     Route: 041
     Dates: start: 20131204, end: 20131205
  21. SOLU-CORTEF [Concomitant]
     Dosage: UNK
     Dates: start: 20131204, end: 20131204
  22. FORTECORTIN [Concomitant]
     Dosage: UNK
     Dates: start: 20031126, end: 20131129
  23. TAVEGYL [Concomitant]
     Dosage: UNK
     Dates: start: 20131129, end: 20131201
  24. PASPERTIN [Concomitant]
     Dosage: UNK
     Dates: start: 20131127, end: 20131127
  25. HEPARIN [Concomitant]
     Dosage: UNK
     Dates: start: 20131126
  26. URSOFALK [Concomitant]
     Dosage: UNK
     Dates: start: 20131126
  27. TAZOBAC [Concomitant]
     Dosage: UNK
     Dates: start: 20131205, end: 20131206

REACTIONS (4)
  - Jaundice [Recovering/Resolving]
  - Haemolysis [Unknown]
  - Hyperbilirubinaemia [Recovering/Resolving]
  - Hepatic enzyme increased [Recovering/Resolving]
